FAERS Safety Report 21082839 (Version 5)
Quarter: 2024Q1

REPORT INFORMATION
  Report Type: Report from Study
  Country: GB (occurrence: GB)
  Receive Date: 20220714
  Receipt Date: 20240128
  Transmission Date: 20240409
  Serious: Yes (Other)
  Sender: FDA-Public Use
  Company Number: GB-NOVARTISPH-NVSC2022GB157700

PATIENT
  Age: 49 Year
  Sex: Male
  Weight: 86 kg

DRUGS (5)
  1. MAYZENT [Suspect]
     Active Substance: SIPONIMOD
     Indication: Multiple sclerosis
     Dosage: UNK, QD
     Route: 048
     Dates: start: 20220710
  2. MAYZENT [Suspect]
     Active Substance: SIPONIMOD
     Indication: Secondary progressive multiple sclerosis
     Dosage: 0.25 MG, QD, (TITRATION DAY 0)
     Route: 048
     Dates: start: 20220711
  3. MAYZENT [Suspect]
     Active Substance: SIPONIMOD
     Dosage: 2 MG, QD
     Route: 048
     Dates: start: 202207
  4. MAYZENT [Suspect]
     Active Substance: SIPONIMOD
     Dosage: UNK, QD
     Route: 048
  5. DOXYCYCLINE [Concomitant]
     Active Substance: DOXYCYCLINE
     Indication: Malaria prophylaxis
     Dosage: UNK, QD (FOR 6 WEEKS)
     Route: 065

REACTIONS (11)
  - Heart rate decreased [Recovering/Resolving]
  - Atrial fibrillation [Unknown]
  - Basal cell carcinoma [Unknown]
  - Blood pressure decreased [Recovered/Resolved]
  - Urinary tract infection [Recovered/Resolved]
  - Peripheral circulatory failure [Unknown]
  - Melanocytic naevus [Unknown]
  - Bundle branch block right [Unknown]
  - Chillblains [Unknown]
  - COVID-19 [Recovered/Resolved]
  - Blister [Not Recovered/Not Resolved]

NARRATIVE: CASE EVENT DATE: 20220701
